FAERS Safety Report 17022769 (Version 1)
Quarter: 2019Q4

REPORT INFORMATION
  Report Type: Spontaneous
  Country: US (occurrence: US)
  Receive Date: 20191112
  Receipt Date: 20191112
  Transmission Date: 20200122
  Serious: No
  Sender: FDA-Public Use
  Company Number: US-ALEXION PHARMACEUTICALS INC.-A201916633

PATIENT

DRUGS (1)
  1. SOLIRIS [Suspect]
     Active Substance: ECULIZUMAB
     Indication: PRODUCT USED FOR UNKNOWN INDICATION
     Dosage: 900 MG, UNK
     Route: 065

REACTIONS (6)
  - Rash [Unknown]
  - Paraesthesia [Unknown]
  - Fatigue [Unknown]
  - Hypoaesthesia [Unknown]
  - Asthenia [Unknown]
  - Pruritus [Unknown]
